FAERS Safety Report 7437008-8 (Version None)
Quarter: 2011Q2

REPORT INFORMATION
  Report Type: 
  Country: None (occurrence: None)
  Receive Date: 20110415
  Receipt Date: 20110331
  Transmission Date: 20111010
  Serious: Yes (Other)
  Sender: FDA-Public Use
  Company Number: 20110247

PATIENT
  Age: 68 Year
  Sex: Female

DRUGS (4)
  1. DEXAMETHASONE SODIUM PHOSPHATE [Suspect]
     Indication: CHEST DISCOMFORT
     Dosage: UNKNOWN DOSE  X 1 DOSE, INJECTION NOS
     Dates: start: 20101208, end: 20101208
  2. DIOVAN [Concomitant]
  3. THYROID MEDICINE [Concomitant]
  4. XANAX [Concomitant]

REACTIONS (5)
  - COUGH [None]
  - CONDITION AGGRAVATED [None]
  - RASH [None]
  - VISUAL IMPAIRMENT [None]
  - ORAL PUSTULE [None]
